FAERS Safety Report 24456801 (Version 2)
Quarter: 2025Q1

REPORT INFORMATION
  Report Type: Report from Study
  Country: SE (occurrence: SE)
  Receive Date: 20241018
  Receipt Date: 20250210
  Transmission Date: 20250409
  Serious: Yes (Hospitalization)
  Sender: GLAXOSMITHKLINE
  Company Number: None

PATIENT

DRUGS (3)
  1. LAMOTRIGINE [Suspect]
     Active Substance: LAMOTRIGINE
     Indication: Mental disorder
     Route: 063
  2. LAMOTRIGINE [Suspect]
     Active Substance: LAMOTRIGINE
     Indication: Epilepsy
     Route: 063
  3. LAMOTRIGINE [Suspect]
     Active Substance: LAMOTRIGINE
     Route: 063

REACTIONS (5)
  - Hypotonia [Recovered/Resolved]
  - Hypotension [Recovered/Resolved]
  - Fatigue [Recovered/Resolved]
  - Drug level increased [Recovered/Resolved]
  - Exposure via breast milk [Unknown]
